FAERS Safety Report 14588752 (Version 1)
Quarter: 2018Q1

REPORT INFORMATION
  Report Type: Report from Study
  Country: CA (occurrence: CA)
  Receive Date: 20180301
  Receipt Date: 20180301
  Transmission Date: 20180509
  Serious: Yes (Death, Hospitalization)
  Sender: FDA-Public Use
  Company Number: CA-ACTELION-A-US2016-141313

PATIENT
  Age: 64 Year
  Sex: Male

DRUGS (18)
  1. UPTRAVI [Suspect]
     Active Substance: SELEXIPAG
     Indication: PULMONARY ARTERIAL HYPERTENSION
     Dosage: 200 MCG, BID
     Route: 048
     Dates: start: 20160822
  2. VITAMIN K [Concomitant]
     Active Substance: PHYTONADIONE
  3. UPTRAVI [Suspect]
     Active Substance: SELEXIPAG
     Dosage: 1000 MCG, UNK
     Route: 048
  4. BACLOFEN. [Concomitant]
     Active Substance: BACLOFEN
  5. LANTUS [Concomitant]
     Active Substance: INSULIN GLARGINE
  6. UPTRAVI [Suspect]
     Active Substance: SELEXIPAG
     Dosage: 600 MCG, BID
     Route: 048
  7. OPSUMIT [Suspect]
     Active Substance: MACITENTAN
     Indication: PULMONARY ARTERIAL HYPERTENSION
     Dosage: 10 MG, UNK
     Route: 048
  8. ULORIC [Concomitant]
     Active Substance: FEBUXOSTAT
  9. VITAMIN B12 [Concomitant]
     Active Substance: CYANOCOBALAMIN
  10. UPTRAVI [Suspect]
     Active Substance: SELEXIPAG
     Dosage: 800 MCG, BID
     Route: 048
  11. REVATIO [Concomitant]
     Active Substance: SILDENAFIL CITRATE
  12. WARFARIN [Concomitant]
     Active Substance: WARFARIN
  13. UPTRAVI [Suspect]
     Active Substance: SELEXIPAG
     Dosage: 400 MCG, BID
     Route: 048
  14. ZAROXOLYN [Concomitant]
     Active Substance: METOLAZONE
  15. POTASSIUM [Concomitant]
     Active Substance: POTASSIUM
  16. LAXATIVE [Concomitant]
     Active Substance: UNSPECIFIED INGREDIENT
  17. MIDAMOR [Concomitant]
     Active Substance: AMILORIDE HYDROCHLORIDE
  18. DIURETIC [Concomitant]
     Active Substance: UNSPECIFIED INGREDIENT

REACTIONS (7)
  - Disease progression [Fatal]
  - Nausea [Recovered/Resolved]
  - Pulmonary hypertension [Fatal]
  - Back pain [Not Recovered/Not Resolved]
  - Peripheral swelling [Not Recovered/Not Resolved]
  - Drug administration error [Not Recovered/Not Resolved]
  - Headache [Not Recovered/Not Resolved]

NARRATIVE: CASE EVENT DATE: 20160822
